FAERS Safety Report 6656856-5 (Version None)
Quarter: 2010Q1

REPORT INFORMATION
  Report Type: 
  Country: None (occurrence: None)
  Receive Date: 20100329
  Receipt Date: 20100329
  Transmission Date: 20100710
  Serious: No
  Sender: FDA-Public Use
  Company Number: None

PATIENT
  Age: 30 Year
  Sex: Female
  Weight: 137.8935 kg

DRUGS (2)
  1. LUNESTA [Suspect]
     Indication: INSOMNIA
     Dosage: 3MG TABLET 1 PO QHS PRN PO
     Route: 048
     Dates: start: 20100303, end: 20100326
  2. ROZEREM [Concomitant]

REACTIONS (2)
  - NO THERAPEUTIC RESPONSE [None]
  - PRODUCT TASTE ABNORMAL [None]
